FAERS Safety Report 15369815 (Version 1)
Quarter: 2018Q3

REPORT INFORMATION
  Report Type: Spontaneous
  Country: US (occurrence: US)
  Receive Date: 20180904
  Receipt Date: 20180904
  Transmission Date: 20181010
  Serious: Yes (Hospitalization)
  Sender: FDA-Public Use
  Company Number: None

PATIENT
  Age: 66 Year
  Sex: Male
  Weight: 83.9 kg

DRUGS (2)
  1. ETOPOSIDE (VP?16) [Suspect]
     Active Substance: ETOPOSIDE
     Dates: end: 20180816
  2. CISPLATIN. [Suspect]
     Active Substance: CISPLATIN
     Dates: end: 20180814

REACTIONS (2)
  - Febrile neutropenia [None]
  - Productive cough [None]

NARRATIVE: CASE EVENT DATE: 20180828
